FAERS Safety Report 20486780 (Version 2)
Quarter: 2022Q3

REPORT INFORMATION
  Report Type: Spontaneous
  Country: US (occurrence: US)
  Receive Date: 20220217
  Receipt Date: 20220812
  Transmission Date: 20221027
  Serious: Yes (Other)
  Sender: FDA-Public Use
  Company Number: US-Albireo AB-2021ALB000107

PATIENT
  Age: 2 Year
  Sex: Male

DRUGS (5)
  1. BYLVAY [Suspect]
     Active Substance: ODEVIXIBAT
     Indication: Progressive familial intrahepatic cholestasis
     Dosage: 2-200 MCG CAPSULES-SPRINKLES
     Route: 048
     Dates: start: 20210903
  2. Vitamin ADEK [Concomitant]
     Indication: Liver disorder
     Dates: start: 20200904
  3. VITAMIN D [Concomitant]
     Active Substance: VITAMIN D NOS
     Indication: Vitamin D decreased
     Dates: start: 20211020
  4. URSODIOL [Concomitant]
     Active Substance: URSODIOL
     Indication: Liver disorder
     Dates: start: 20200904
  5. FERROUS SULFATE [Concomitant]
     Active Substance: FERROUS SULFATE
     Indication: Liver disorder
     Dates: start: 20220119

REACTIONS (6)
  - Liver function test abnormal [Not Recovered/Not Resolved]
  - Transaminases abnormal [Not Recovered/Not Resolved]
  - Liver function test abnormal [Not Recovered/Not Resolved]
  - Ocular icterus [Not Recovered/Not Resolved]
  - Therapeutic response unexpected [Unknown]
  - Therapeutic response unexpected [Unknown]

NARRATIVE: CASE EVENT DATE: 20200904
